FAERS Safety Report 17939864 (Version 1)
Quarter: 2020Q2

REPORT INFORMATION
  Report Type: Spontaneous
  Country: US (occurrence: US)
  Receive Date: 20200624
  Receipt Date: 20200624
  Transmission Date: 20200714
  Serious: Yes (Hospitalization, Disabling)
  Sender: FDA-Public Use
  Company Number: US-JNJFOC-20200628106

PATIENT
  Age: 55 Year
  Sex: Male

DRUGS (1)
  1. INVOKANA [Suspect]
     Active Substance: CANAGLIFLOZIN
     Indication: PRODUCT USED FOR UNKNOWN INDICATION
     Route: 048

REACTIONS (5)
  - Sepsis [Recovering/Resolving]
  - Gangrene [Recovering/Resolving]
  - Limb amputation [Unknown]
  - Osteomyelitis [Recovering/Resolving]
  - Infected skin ulcer [Unknown]

NARRATIVE: CASE EVENT DATE: 201611
